FAERS Safety Report 7492052-X (Version None)
Quarter: 2011Q2

REPORT INFORMATION
  Report Type: 
  Country: None (occurrence: None)
  Receive Date: 20110511
  Receipt Date: 20110504
  Transmission Date: 20111010
  Serious: Yes (Death, Hospitalization)
  Sender: FDA-Public Use
  Company Number: 2011SP019476

PATIENT
  Age: 55 Year
  Sex: Male
  Weight: 58.96 kg

DRUGS (36)
  1. INTRON A [Suspect]
     Indication: HEPATITIS C
     Dates: start: 20110110, end: 20110314
  2. REGLAN [Concomitant]
  3. SODIUM CHLORIDE [Concomitant]
  4. XANAX [Concomitant]
  5. DEXTROSE [Concomitant]
  6. ULTRAM [Concomitant]
  7. FENTANYL/NS [Concomitant]
  8. DIFLUCAN [Concomitant]
  9. HUMULIN R/NOVOLIN R [Concomitant]
  10. ACETAMINOPHEN [Concomitant]
  11. CORDARONE [Concomitant]
  12. ATROPINE SULFATE [Concomitant]
  13. SODIUM CHLORIDE [Concomitant]
  14. SODIUM CHLORIDE [Concomitant]
  15. REBETOL [Suspect]
     Indication: HEPATITIS C
     Dosage: 1000 MG;QD;PO
     Route: 048
     Dates: start: 20110110, end: 20110404
  16. HEPARIN LOCK-FLUSH [Concomitant]
  17. HEPARIN SODIUM [Concomitant]
  18. PROTONIX [Concomitant]
  19. ACETAMINOPHEN [Concomitant]
  20. THEOPHYLLINE [Concomitant]
  21. CATAPRES-TTS-2 [Concomitant]
  22. COMBIVENT [Concomitant]
  23. LANTUS [Concomitant]
  24. VERSED [Concomitant]
  25. GLUCAGON [Concomitant]
  26. TUSSIONEX [Concomitant]
  27. NITROGLYCERIN [Concomitant]
  28. DORIBAX [Concomitant]
  29. ALBUTEROL SULFATE AUTOHALER [Concomitant]
  30. NORVASC [Concomitant]
  31. SOLU-MEDROL [Concomitant]
  32. ALDACTONE [Concomitant]
  33. COMBIVENT [Concomitant]
  34. GLUCOSE [Concomitant]
  35. SODIUM CHLORIDE [Concomitant]
  36. PRILOSEC [Concomitant]

REACTIONS (11)
  - DIZZINESS [None]
  - VOMITING [None]
  - NAUSEA [None]
  - INTERNATIONAL NORMALISED RATIO DECREASED [None]
  - PULMONARY OEDEMA [None]
  - PLATELET COUNT DECREASED [None]
  - BLOOD GLUCOSE INCREASED [None]
  - DEHYDRATION [None]
  - RESPIRATORY DISTRESS [None]
  - PNEUMONIA [None]
  - CONSTIPATION [None]
